FAERS Safety Report 25481169 (Version 1)
Quarter: 2025Q2

REPORT INFORMATION
  Report Type: Spontaneous
  Country: CN (occurrence: CN)
  Receive Date: 20250626
  Receipt Date: 20250626
  Transmission Date: 20250717
  Serious: Yes (Other)
  Sender: CHEPLAPHARM
  Company Number: CN-CHEPLA-2025007652

PATIENT
  Age: 71 Year
  Sex: Female
  Weight: 51 kg

DRUGS (2)
  1. CAPECITABINE [Suspect]
     Active Substance: CAPECITABINE
     Indication: Adenocarcinoma gastric
     Route: 048
     Dates: start: 20240626
  2. SINTILIMAB [Suspect]
     Active Substance: SINTILIMAB
     Indication: Adenocarcinoma gastric
     Route: 042
     Dates: start: 20240626

REACTIONS (9)
  - Immune-mediated myocarditis [Recovered/Resolved]
  - Myasthenia gravis [Unknown]
  - Hypothyroidism [Unknown]
  - Cardiac arrest [Unknown]
  - Thyroiditis [Unknown]
  - Abdominal distension [Unknown]
  - Eyelid ptosis [Recovered/Resolved]
  - Bundle branch block right [Unknown]
  - Atrioventricular block [Unknown]

NARRATIVE: CASE EVENT DATE: 20240718
